FAERS Safety Report 14785122 (Version 2)
Quarter: 2018Q2

REPORT INFORMATION
  Report Type: Spontaneous
  Country: US (occurrence: US)
  Receive Date: 20180420
  Receipt Date: 20180424
  Transmission Date: 20180711
  Serious: Yes (Other)
  Sender: FDA-Public Use
  Company Number: US-PFIZER INC-2018158752

PATIENT
  Age: 46 Year
  Sex: Female
  Weight: 55.33 kg

DRUGS (2)
  1. DEPO-PROVERA [Suspect]
     Active Substance: MEDROXYPROGESTERONE ACETATE
     Indication: PROGESTERONE DECREASED
     Dosage: 150 MG, UNK (EVERY 13 WEEKS)
     Route: 030
  2. DEPO-PROVERA [Suspect]
     Active Substance: MEDROXYPROGESTERONE ACETATE
     Dosage: 150 MG, UNK (EVERY 10 WEEKS)
     Route: 030

REACTIONS (12)
  - Progesterone decreased [Unknown]
  - Bone density decreased [Unknown]
  - Muscle spasms [Unknown]
  - Aspergillus infection [Unknown]
  - Paraesthesia [Unknown]
  - Tremor [Unknown]
  - Staphylococcal infection [Unknown]
  - Drug ineffective for unapproved indication [Unknown]
  - Chest discomfort [Unknown]
  - Uterine leiomyoma [Unknown]
  - Viral infection [Unknown]
  - Feeling abnormal [Unknown]
